FAERS Safety Report 16864804 (Version 1)
Quarter: 2019Q3

REPORT INFORMATION
  Report Type: Report from Study
  Country: JP (occurrence: JP)
  Receive Date: 20190929
  Receipt Date: 20190929
  Transmission Date: 20191005
  Serious: Yes (Death, Hospitalization)
  Sender: FDA-Public Use
  Company Number: PHJP2019JP012679

PATIENT
  Age: 78 Year
  Sex: Male

DRUGS (4)
  1. TAFINLAR [Suspect]
     Active Substance: DABRAFENIB MESYLATE
     Indication: MALIGNANT MELANOMA STAGE IV
     Dosage: 300 MG, QD
     Route: 048
     Dates: start: 20170801, end: 20170831
  2. MEKINIST [Suspect]
     Active Substance: TRAMETINIB DIMETHYL SULFOXIDE
     Indication: MALIGNANT MELANOMA STAGE IV
     Dosage: 2 MG, QD
     Route: 048
     Dates: start: 20170801, end: 20170831
  3. MEKINIST [Suspect]
     Active Substance: TRAMETINIB DIMETHYL SULFOXIDE
     Dosage: 1.5 MG, INTERMITTENT ADMINISTRATION (2 WEEKS)
     Route: 048
     Dates: start: 20171010, end: 20180101
  4. TAFINLAR [Suspect]
     Active Substance: DABRAFENIB MESYLATE
     Dosage: 200 MG, INTERMITTENT ADMINISTRATION (2 WEEKS)
     Route: 048
     Dates: start: 20171010, end: 20180101

REACTIONS (5)
  - Blood bilirubin increased [Recovering/Resolving]
  - Malignant melanoma stage IV [Fatal]
  - Concomitant disease progression [Recovering/Resolving]
  - Pyrexia [Recovered/Resolved]
  - Malignant neoplasm progression [Fatal]

NARRATIVE: CASE EVENT DATE: 20170831
